FAERS Safety Report 8917453 (Version 1)
Quarter: 2012Q4

REPORT INFORMATION
  Report Type: 
  Country: US (occurrence: US)
  Receive Date: 20121120
  Receipt Date: 20121120
  Transmission Date: 20130627
  Serious: No
  Sender: FDA-Public Use
  Company Number: US-009507513-1208USA011362

PATIENT
  Age: 47 None
  Sex: Female
  Weight: 50.79 kg

DRUGS (3)
  1. PEGINTRON [Suspect]
     Indication: HEPATITIS C
     Dosage: UNK
     Dates: start: 20120714
  2. REBETOL [Suspect]
     Indication: HEPATITIS C
     Dosage: UNK
     Dates: start: 20120714
  3. TELAPREVIR [Concomitant]
     Indication: HEPATITIS C
     Dosage: UNK
     Dates: start: 20120714

REACTIONS (21)
  - Lip dry [Unknown]
  - Saliva altered [Unknown]
  - Hyperphagia [Unknown]
  - Palpitations [Unknown]
  - Pollakiuria [Unknown]
  - Vomiting [Unknown]
  - Frequent bowel movements [Unknown]
  - Dyspepsia [Unknown]
  - Weight decreased [Unknown]
  - Dry mouth [Unknown]
  - Rash [Unknown]
  - Fatigue [Unknown]
  - Asthenia [Unknown]
  - Decreased appetite [Unknown]
  - Abdominal discomfort [Unknown]
  - Dry skin [Unknown]
  - Dyspnoea [Unknown]
  - Fatigue [Unknown]
  - Nausea [Unknown]
  - Vomiting [Unknown]
  - Dry skin [Unknown]
